FAERS Safety Report 9889500 (Version 2)
Quarter: 2014Q1

REPORT INFORMATION
  Report Type: Report from Study
  Country: IT (occurrence: IT)
  Receive Date: 20140211
  Receipt Date: 20140211
  Transmission Date: 20141002
  Serious: Yes (Hospitalization)
  Sender: FDA-Public Use
  Company Number: IT-TAKEDA-TPA2013A07432

PATIENT
  Sex: 0

DRUGS (28)
  1. FEBUXOSTAT [Suspect]
     Indication: TUMOUR LYSIS SYNDROME
     Dosage: 120 MG, QD
     Route: 048
     Dates: start: 20130717, end: 20130723
  2. REYATAZ [Concomitant]
     Indication: HIV TEST POSITIVE
     Dosage: 300 MG, QD
     Route: 048
     Dates: start: 20110601
  3. NORVIR [Concomitant]
     Indication: HIV TEST POSITIVE
     Dosage: 100 MG, QD
     Route: 048
     Dates: start: 20110601
  4. TRUVADA [Concomitant]
     Indication: HIV TEST POSITIVE
     Dosage: 200 MG, QD
     Route: 048
     Dates: start: 20110601
  5. CYCLOPHOSPHAMIDE W/DOXORUBICIN/PREDNISONE/VIN [Concomitant]
     Indication: CHEMOTHERAPY
     Dates: start: 20130719, end: 20130723
  6. METADONE [Concomitant]
     Indication: DRUG DEPENDENCE
     Dosage: 140 MG, QD
     Route: 048
     Dates: start: 19990601
  7. OMEPRAZOLE [Concomitant]
     Indication: GASTRITIS
     Dosage: 20 MG, QD
     Route: 048
     Dates: start: 20130708
  8. SODIUM BICARBONATE [Concomitant]
     Indication: CHEMOTHERAPY
     Dosage: 3 G, QD
     Route: 048
     Dates: start: 20130708, end: 20130726
  9. POLASE [Concomitant]
     Indication: HYPOKALAEMIA
     Dosage: 1 BAG 2 IN 1 DAY
     Route: 048
     Dates: start: 20130708
  10. URBASON [Concomitant]
     Indication: CHEMOTHERAPY
     Dosage: 20 MG, BID
     Route: 042
     Dates: start: 20130708, end: 20130721
  11. URBASON [Concomitant]
     Dosage: 20 MG, QD
     Route: 042
     Dates: start: 20130722
  12. LEVOFLOXACINA [Concomitant]
     Indication: PYREXIA
     Dosage: 500 MG, QD
     Route: 048
     Dates: start: 20130718, end: 20130726
  13. LEXOTAN [Concomitant]
     Indication: ANXIETY
     Dosage: 20 GTT, QD
     Route: 048
     Dates: start: 20130718, end: 20130721
  14. LEXOTAN [Concomitant]
     Dosage: 20 GTT, QD
     Route: 048
     Dates: start: 20130723, end: 20130725
  15. LEXOTAN [Concomitant]
     Dosage: 15 GTT, QD
     Route: 048
     Dates: start: 20130715, end: 20130716
  16. LASIX [Concomitant]
     Indication: FLUID RETENTION
     Dosage: 20 MG, QD
     Route: 042
     Dates: start: 20130720, end: 20130720
  17. LASIX [Concomitant]
     Dosage: 20 MG, QD
     Route: 042
     Dates: start: 20130713, end: 20130713
  18. LAEVOLAC [Concomitant]
     Indication: CONSTIPATION
     Dosage: 10 MG, QD
     Route: 048
     Dates: start: 20130720, end: 20130720
  19. LAEVOLAC [Concomitant]
     Dosage: 2 SPOON,QD
     Route: 048
     Dates: start: 20130708, end: 20130709
  20. LAEVOLAC [Concomitant]
     Dosage: 2 SPOON,QD
     Route: 048
     Dates: start: 20130717, end: 20130717
  21. CORSODYL [Concomitant]
     Indication: MUCOSAL INFLAMMATION
     Dosage: 10 MG, TID
     Route: 048
     Dates: start: 20130722, end: 20130726
  22. MYCOSTATIN [Concomitant]
     Indication: MUCOSAL INFLAMMATION
     Dosage: 30 MG, TID
     Route: 048
     Dates: start: 20130722, end: 20130726
  23. DIFLUCAN [Concomitant]
     Indication: MUCOSAL INFLAMMATION
     Dosage: 100 MG, QD
     Route: 048
     Dates: start: 20130722, end: 20130726
  24. DIFLUCAN [Concomitant]
     Dosage: 200 MG, QD
     Route: 048
     Dates: start: 20130727
  25. IMODIUM [Concomitant]
     Indication: DIARRHOEA
     Dosage: 4 MG, QD
     Route: 048
     Dates: start: 20130724, end: 20130724
  26. ALBUMIN [Concomitant]
     Indication: FLUID IMBALANCE
     Dosage: 1 VIAL ,QD
     Route: 042
     Dates: start: 20130724, end: 20130724
  27. TRIMETON                           /00072502/ [Concomitant]
     Indication: PRURITUS
     Dosage: UNK, QD
     Route: 042
     Dates: start: 20130709, end: 20130711
  28. TACHIPIRINA [Concomitant]
     Indication: HEADACHE
     Dosage: 1 G, QD
     Route: 048
     Dates: start: 20130717, end: 20130717

REACTIONS (4)
  - Febrile neutropenia [Recovered/Resolved]
  - Leukopenia [Recovered/Resolved]
  - Platelet count decreased [Recovered/Resolved]
  - Anaemia [Recovered/Resolved]
